FAERS Safety Report 21870858 (Version 1)
Quarter: 2023Q1

REPORT INFORMATION
  Report Type: Spontaneous
  Country: AU (occurrence: AU)
  Receive Date: 20230117
  Receipt Date: 20230117
  Transmission Date: 20230418
  Serious: Yes (Other)
  Sender: FDA-Public Use
  Company Number: AU-drreddys-LIT/AUS/23/0159933

PATIENT
  Age: 28 Year
  Sex: Female

DRUGS (2)
  1. PREGABALIN [Suspect]
     Active Substance: PREGABALIN
     Indication: Product used for unknown indication
  2. PREGABALIN [Suspect]
     Active Substance: PREGABALIN

REACTIONS (5)
  - Drug use disorder [Unknown]
  - Drug withdrawal syndrome [Unknown]
  - Normal newborn [Recovered/Resolved]
  - Drug abuse [Unknown]
  - Exposure during pregnancy [Recovered/Resolved]
